FAERS Safety Report 15411196 (Version 3)
Quarter: 2018Q4

REPORT INFORMATION
  Report Type: Spontaneous
  Country: US (occurrence: US)
  Receive Date: 20180921
  Receipt Date: 20181112
  Transmission Date: 20190204
  Serious: No
  Sender: FDA-Public Use
  Company Number: US-PFIZER INC-2018379105

PATIENT
  Age: 78 Year
  Sex: Female
  Weight: 82.54 kg

DRUGS (1)
  1. IBRANCE [Suspect]
     Active Substance: PALBOCICLIB
     Indication: BREAST CANCER METASTATIC
     Dosage: 125 MG, CYCLIC (DAY1-21 Q 28 DAYS)
     Route: 048
     Dates: start: 20180912

REACTIONS (8)
  - Pain in extremity [Unknown]
  - Nausea [Unknown]
  - Weight decreased [Unknown]
  - Blood glucose increased [Unknown]
  - Diarrhoea [Unknown]
  - Decreased appetite [Unknown]
  - Asthenia [Unknown]
  - Malaise [Unknown]

NARRATIVE: CASE EVENT DATE: 201809
